FAERS Safety Report 17426545 (Version 2)
Quarter: 2020Q2

REPORT INFORMATION
  Report Type: Report from Study
  Country: None (occurrence: US)
  Receive Date: 20200218
  Receipt Date: 20200511
  Transmission Date: 20200713
  Serious: Yes (Other)
  Sender: FDA-Public Use
  Company Number: US-ABBVIE-20K-163-3278125-00

PATIENT
  Sex: Female
  Weight: 82.63 kg

DRUGS (1)
  1. HUMIRA [Suspect]
     Active Substance: ADALIMUMAB
     Indication: RHEUMATOID ARTHRITIS
     Route: 058
     Dates: end: 20200124

REACTIONS (5)
  - Arthralgia [Unknown]
  - Lower limb fracture [Not Recovered/Not Resolved]
  - Knee deformity [Unknown]
  - Fall [Unknown]
  - Hypoaesthesia [Unknown]
